FAERS Safety Report 8153755-7 (Version None)
Quarter: 2012Q1

REPORT INFORMATION
  Report Type: 
  Country: None (occurrence: None)
  Receive Date: 20120221
  Receipt Date: 20120214
  Transmission Date: 20120608
  Serious: Yes (Hospitalization, Congenital Anomaly)
  Sender: FDA-Public Use
  Company Number: US-GLAXOSMITHKLINE-A0963989A

PATIENT
  Sex: Female
  Weight: 2.1 kg

DRUGS (1)
  1. PAXIL [Suspect]
     Indication: PRODUCT USED FOR UNKNOWN INDICATION
     Dosage: 20MG PER DAY
     Route: 064

REACTIONS (3)
  - MENINGOCELE [None]
  - CONGENITAL TERATOMA [None]
  - FOETAL EXPOSURE DURING PREGNANCY [None]
